FAERS Safety Report 4686745-7 (Version None)
Quarter: 2005Q2

REPORT INFORMATION
  Report Type: 
  Country: None (occurrence: None)
  Receive Date: 20050608
  Receipt Date: 20050525
  Transmission Date: 20051028
  Serious: Yes (Hospitalization, Other)
  Sender: FDA-Public Use
  Company Number: HQWYE773318MAY05

PATIENT
  Age: 76 Year
  Sex: Male

DRUGS (2)
  1. PANTOPRAZOLE SODIUM [Suspect]
     Indication: GASTROOESOPHAGEAL REFLUX DISEASE
     Dosage: 40 MG
     Route: 048
     Dates: start: 19900821
  2. DUSODRIL (NAFTIDROFURYL OXALATE) [Concomitant]

REACTIONS (3)
  - CONCUSSION [None]
  - FALL [None]
  - VERTIGO [None]
